FAERS Safety Report 13688320 (Version 1)
Quarter: 2017Q2

REPORT INFORMATION
  Report Type: Spontaneous
  Country: US (occurrence: US)
  Receive Date: 20170626
  Receipt Date: 20170626
  Transmission Date: 20170830
  Serious: No
  Sender: FDA-Public Use
  Company Number: US-AUROBINDO-AUR-APU-2017-28704

PATIENT
  Sex: Male
  Weight: 68.2 kg

DRUGS (1)
  1. TAMSULOSIN HYDROCHLORIDE CAPSULES USP 0.4 MG [Suspect]
     Active Substance: TAMSULOSIN HYDROCHLORIDE
     Indication: URINE OUTPUT INCREASED
     Dosage: ONE CAPSULE ONCE OR TWICE A DAY
     Route: 048
     Dates: start: 20161023, end: 201701

REACTIONS (4)
  - Pruritus [Recovering/Resolving]
  - Generalised erythema [Recovering/Resolving]
  - Urticaria [Recovering/Resolving]
  - Rash [Recovering/Resolving]
